FAERS Safety Report 8421990-6 (Version None)
Quarter: 2012Q2

REPORT INFORMATION
  Report Type: 
  Country: None (occurrence: None)
  Receive Date: 20120605
  Receipt Date: 20120605
  Transmission Date: 20120825
  Serious: Yes (Other)
  Sender: FDA-Public Use
  Company Number: None

PATIENT
  Age: 75 Year
  Sex: Female
  Weight: 70.3075 kg

DRUGS (2)
  1. METHYLPREDNISOLONE [Suspect]
     Indication: UPPER RESPIRATORY TRACT INFECTION
     Dosage: 4 MG AS DIRECTED
     Dates: start: 20120424
  2. CIPROFLOXACIN [Suspect]
     Indication: UPPER RESPIRATORY TRACT INFECTION
     Dosage: 500 MG TWO TIMES DAY
     Dates: start: 20120423

REACTIONS (13)
  - HEADACHE [None]
  - MUSCULOSKELETAL PAIN [None]
  - JOINT SWELLING [None]
  - DIZZINESS [None]
  - ABASIA [None]
  - BEDRIDDEN [None]
  - ARTHRALGIA [None]
  - SWELLING [None]
  - WALKING AID USER [None]
  - ASTHENIA [None]
  - PAIN IN EXTREMITY [None]
  - OEDEMA PERIPHERAL [None]
  - HYPERSOMNIA [None]
